FAERS Safety Report 10096018 (Version 2)
Quarter: 2014Q2

REPORT INFORMATION
  Report Type: Report from Study
  Country: US (occurrence: US)
  Receive Date: 20140422
  Receipt Date: 20140604
  Transmission Date: 20141212
  Serious: Yes (Life-Threatening)
  Sender: FDA-Public Use
  Company Number: US-SA-2014SA045900

PATIENT
  Age: 71 Year
  Sex: Male
  Weight: 104.32 kg

DRUGS (8)
  1. LANTUS SOLOSTAR [Suspect]
     Indication: DIABETES MELLITUS INADEQUATE CONTROL
     Dosage: DOSE:44UNITS AM/36 AT PM
     Route: 065
     Dates: start: 2011
  2. SOLOSTAR [Concomitant]
     Indication: DEVICE THERAPY
     Dates: start: 2011
  3. HUMALOG [Concomitant]
     Indication: TYPE 2 DIABETES MELLITUS
     Dosage: DOSE:22 UNIT(S)
  4. SYNTHROID [Concomitant]
     Indication: HYPOTHYROIDISM
     Dosage: HALF HOUR BEFORE EATING
     Dates: start: 2009
  5. METOPROLOL [Concomitant]
     Indication: CARDIAC FIBRILLATION
     Dosage: 2 AM AND 1 PM
  6. ENALAPRIL [Concomitant]
     Indication: HYPERTENSION
     Dosage: 1 (AM)
  7. LANOXIN [Concomitant]
     Indication: CARDIAC DISORDER
     Dosage: 1 (AM)
  8. SIMVASTATIN [Concomitant]
     Indication: CARDIAC DISORDER
     Dosage: 1 (AM)

REACTIONS (2)
  - Non-Hodgkin^s lymphoma [Unknown]
  - Off label use [Unknown]
